FAERS Safety Report 8874607 (Version 1)
Quarter: 2012Q4

REPORT INFORMATION
  Report Type: 
  Country: US (occurrence: US)
  Receive Date: 20121030
  Receipt Date: 20121030
  Transmission Date: 20130627
  Serious: No
  Sender: FDA-Public Use
  Company Number: US-009507513-1210USA010930

PATIENT
  Age: 32 Year
  Sex: Female

DRUGS (2)
  1. PEGINTRON [Suspect]
     Indication: HEPATITIS C
     Dosage: UNK
     Dates: start: 20121012
  2. TELAPREVIR [Concomitant]
     Indication: HEPATITIS C
     Dosage: UNK

REACTIONS (4)
  - Contusion [Unknown]
  - Influenza [Unknown]
  - Diarrhoea [Unknown]
  - Pruritus [Unknown]
